FAERS Safety Report 21743452 (Version 1)
Quarter: 2022Q4

REPORT INFORMATION
  Report Type: Spontaneous
  Country: US (occurrence: US)
  Receive Date: 20221217
  Receipt Date: 20221217
  Transmission Date: 20230113
  Serious: No
  Sender: FDA-Public Use
  Company Number: US-002147023-NVSC2022US290487

PATIENT
  Sex: Female

DRUGS (1)
  1. ESTRADIOL [Suspect]
     Active Substance: ESTRADIOL
     Indication: Product used for unknown indication
     Dosage: UNK (STOP TAKING THE MEDICATION 4 MONTHS AGO)
     Route: 065
     Dates: start: 2022, end: 202208

REACTIONS (5)
  - Toxicity to various agents [Unknown]
  - Breast enlargement [Unknown]
  - Peripheral swelling [Unknown]
  - Weight increased [Unknown]
  - Depression [Unknown]
